FAERS Safety Report 16083648 (Version 1)
Quarter: 2019Q1

REPORT INFORMATION
  Report Type: Spontaneous
  Country: US (occurrence: US)
  Receive Date: 20190318
  Receipt Date: 20190318
  Transmission Date: 20190418
  Serious: Yes (Other)
  Sender: FDA-Public Use
  Company Number: US-VIIV HEALTHCARE LIMITED-US2019GSK046631

PATIENT
  Age: 49 Year
  Sex: Male
  Weight: 81.65 kg

DRUGS (5)
  1. TIVICAY [Suspect]
     Active Substance: DOLUTEGRAVIR SODIUM
     Indication: ANTIVIRAL TREATMENT
     Dosage: 50 MG, UNK
     Route: 048
  2. DESCOVY [Suspect]
     Active Substance: EMTRICITABINE\TENOFOVIR ALAFENAMIDE FUMARATE
     Indication: ANTIVIRAL TREATMENT
     Dosage: 200/25 MG, QD
     Route: 048
  3. DIPHENOXYLATE [Suspect]
     Active Substance: DIPHENOXYLATE
     Indication: DIARRHOEA
     Dosage: 2.5 MG, QID
  4. DIPHENOXYLATE [Suspect]
     Active Substance: DIPHENOXYLATE
     Indication: GASTROINTESTINAL DISORDER
  5. PREZCOBIX [Suspect]
     Active Substance: COBICISTAT\DARUNAVIR ETHANOLATE
     Indication: ANTIVIRAL TREATMENT
     Dosage: 800-150 MG, QD
     Route: 048

REACTIONS (3)
  - Haematochezia [Recovered/Resolved]
  - Gastrointestinal disorder [Unknown]
  - Diarrhoea [Not Recovered/Not Resolved]

NARRATIVE: CASE EVENT DATE: 201711
